FAERS Safety Report 5378625-9 (Version None)
Quarter: 2007Q3

REPORT INFORMATION
  Report Type: 
  Country: None (occurrence: None)
  Receive Date: 20070702
  Receipt Date: 20070702
  Transmission Date: 20080115
  Serious: Yes (Disabling, Other)
  Sender: FDA-Public Use
  Company Number: None

PATIENT
  Age: 50 Year
  Sex: Female
  Weight: 63.5036 kg

DRUGS (1)
  1. HYDROXYCHLOROQUINE SULFATE [Suspect]
     Indication: GRANULOMA ANNULARE
     Dosage: 200 MG 2X'S DAY
     Dates: start: 20070517, end: 20070528

REACTIONS (7)
  - ADVERSE DRUG REACTION [None]
  - COUGH [None]
  - DYSPNOEA [None]
  - INFLUENZA [None]
  - LUNG DISORDER [None]
  - RASH [None]
  - VISUAL ACUITY REDUCED [None]
